FAERS Safety Report 16465960 (Version 1)
Quarter: 2019Q2

REPORT INFORMATION
  Report Type: Report from Study
  Country: PK (occurrence: PK)
  Receive Date: 20190621
  Receipt Date: 20190621
  Transmission Date: 20190711
  Serious: Yes (Death)
  Sender: FDA-Public Use
  Company Number: PHHY2019PK143813

PATIENT
  Sex: Female
  Weight: 67 kg

DRUGS (1)
  1. AFINITOR [Suspect]
     Active Substance: EVEROLIMUS
     Indication: RENAL CELL CARCINOMA
     Dosage: 10 MG, QD (ONCE DAILY)
     Route: 048
     Dates: start: 20180220, end: 20180327

REACTIONS (1)
  - Death [Fatal]
